FAERS Safety Report 7850442-7 (Version None)
Quarter: 2011Q4

REPORT INFORMATION
  Report Type: 
  Country: None (occurrence: None)
  Receive Date: 20111026
  Receipt Date: 20111026
  Transmission Date: 20120403
  Serious: Yes (Other)
  Sender: FDA-Public Use
  Company Number: None

PATIENT
  Age: 54 Year
  Sex: Female
  Weight: 67.131 kg

DRUGS (1)
  1. DEXAMETHASONE SODIUM PHOSPHATE [Suspect]
     Indication: MUSCULOSKELETAL PAIN
     Dosage: UNKNOWN TO ME
     Route: 044
     Dates: start: 20101126, end: 20101223

REACTIONS (6)
  - LOCAL SWELLING [None]
  - PRODUCT QUALITY ISSUE [None]
  - GINGIVAL SWELLING [None]
  - PAIN [None]
  - INSOMNIA [None]
  - CHOKING SENSATION [None]
